FAERS Safety Report 19514224 (Version 1)
Quarter: 2021Q3

REPORT INFORMATION
  Report Type: Spontaneous
  Country: US (occurrence: US)
  Receive Date: 20210709
  Receipt Date: 20210709
  Transmission Date: 20211014
  Serious: Yes (Death, Other)
  Sender: FDA-Public Use
  Company Number: US-GLAXOSMITHKLINE-US2021GSK141476

PATIENT
  Sex: Male

DRUGS (9)
  1. ZANTAC [Suspect]
     Active Substance: RANITIDINE HYDROCHLORIDE
     Indication: CROHN^S DISEASE
     Dosage: 150 MG, OCCASIONAL
     Route: 065
     Dates: start: 198701, end: 201908
  2. ZANTAC [Suspect]
     Active Substance: RANITIDINE HYDROCHLORIDE
     Indication: CROHN^S DISEASE
     Dosage: UNK, OCCASIONAL
     Route: 065
     Dates: start: 198701, end: 201901
  3. RANITIDINE. [Suspect]
     Active Substance: RANITIDINE
     Indication: CROHN^S DISEASE
     Dosage: 150 MG, OCCASIONAL
     Route: 065
     Dates: start: 198701, end: 201908
  4. RANITIDINE. [Suspect]
     Active Substance: RANITIDINE
     Indication: CROHN^S DISEASE
     Dosage: 150 MG, OCCASIONAL
     Route: 065
     Dates: start: 198701, end: 201908
  5. ZANTAC [Suspect]
     Active Substance: RANITIDINE HYDROCHLORIDE
     Indication: CROHN^S DISEASE
     Dosage: UNK, OCCASIONAL
     Route: 065
     Dates: start: 198701, end: 201901
  6. RANITIDINE CAPSULE [Suspect]
     Active Substance: RANITIDINE
     Indication: CROHN^S DISEASE
     Dosage: 150 MG, OCCASIONAL
     Route: 065
     Dates: start: 198701, end: 201908
  7. RANITIDINE. [Suspect]
     Active Substance: RANITIDINE
     Indication: CROHN^S DISEASE
     Dosage: 150 MG, OCCASIONAL
     Route: 065
     Dates: start: 198701, end: 201908
  8. ZANTAC [Suspect]
     Active Substance: RANITIDINE HYDROCHLORIDE
     Indication: CROHN^S DISEASE
     Dosage: 150 MG, OCCASIONAL
     Route: 065
     Dates: start: 198701, end: 201908
  9. RANITIDINE. [Suspect]
     Active Substance: RANITIDINE
     Indication: CROHN^S DISEASE
     Dosage: 150 MG, OCCASIONAL
     Route: 065
     Dates: start: 198701, end: 201908

REACTIONS (3)
  - Pancreatic carcinoma [Unknown]
  - Neoplasm malignant [Fatal]
  - Hepatic cancer [Unknown]
